FAERS Safety Report 4656477-X (Version None)
Quarter: 2005Q2

REPORT INFORMATION
  Report Type: 
  Country: None (occurrence: None)
  Receive Date: 20050505
  Receipt Date: 20050425
  Transmission Date: 20051028
  Serious: Yes (Hospitalization)
  Sender: FDA-Public Use
  Company Number: AR-2005-006388

PATIENT
  Age: 28 Year
  Sex: Female

DRUGS (1)
  1. YASMIN [Suspect]
     Indication: ORAL CONTRACEPTION
     Dosage: 1 TAB(S), 1X/DAY, ORAL
     Route: 048
     Dates: start: 20040801, end: 20050301

REACTIONS (3)
  - BLIGHTED OVUM [None]
  - PREGNANCY ON ORAL CONTRACEPTIVE [None]
  - WITHDRAWAL BLEEDING IRREGULAR [None]
